FAERS Safety Report 8300963-8 (Version None)
Quarter: 2012Q2

REPORT INFORMATION
  Report Type: 
  Country: None (occurrence: None)
  Receive Date: 20120420
  Receipt Date: 20120412
  Transmission Date: 20120825
  Serious: No
  Sender: FDA-Public Use
  Company Number: US-BAYER-2012-038146

PATIENT

DRUGS (3)
  1. ACETAMINOPHEN [Concomitant]
  2. PAMPRIN TAB [Concomitant]
  3. ALEVE (CAPLET) [Suspect]

REACTIONS (1)
  - ABDOMINAL DISCOMFORT [None]
